FAERS Safety Report 8837169 (Version 1)
Quarter: 2012Q4

REPORT INFORMATION
  Report Type: 
  Country: VE (occurrence: VE)
  Receive Date: 20121012
  Receipt Date: 20121012
  Transmission Date: 20130627
  Serious: Yes (Death, Other)
  Sender: FDA-Public Use
  Company Number: PHHY2012VE090588

PATIENT
  Age: 68 None
  Sex: Female

DRUGS (1)
  1. ACLASTA [Suspect]
     Indication: OSTEOPENIA
     Dosage: 5 mg, UNK
     Route: 042

REACTIONS (2)
  - Death [Fatal]
  - Pancreatic carcinoma [Unknown]
